FAERS Safety Report 8592901 (Version 9)
Quarter: 2014Q1

REPORT INFORMATION
  Report Type: Spontaneous
  Country: US (occurrence: US)
  Receive Date: 20120604
  Receipt Date: 20140131
  Transmission Date: 20141002
  Serious: Yes (Disabling)
  Sender: FDA-Public Use
  Company Number: US-ASTRAZENECA-2012SE35386

PATIENT
  Age: 48 Year
  Sex: Female
  Weight: 108.9 kg

DRUGS (24)
  1. NEXIUM [Suspect]
     Indication: GASTROOESOPHAGEAL REFLUX DISEASE
     Route: 048
     Dates: start: 20100804
  2. NEXIUM [Suspect]
     Indication: GASTROOESOPHAGEAL REFLUX DISEASE
     Route: 048
     Dates: start: 20111225
  3. DIOVAN [Concomitant]
     Dates: start: 20101215
  4. VICODIN RS/HYDROCODONE/APAP [Concomitant]
     Dosage: 5/500 MG TAKE ONE TO TWO TABLETS EVERY SIX HOURS AS NEEDED
     Route: 048
     Dates: start: 20100727
  5. ALPRAZOLAM [Concomitant]
     Indication: DEPRESSION
     Dates: start: 20101215
  6. INDERAL LA [Concomitant]
     Dates: start: 20101215
  7. FLUCONAZOLE [Concomitant]
     Dates: start: 20101215
  8. SULFAMETH/TRIMETHOPRIM [Concomitant]
     Dosage: 800/600 TAKE ONE TABLET TWO TIMES A DAY
     Route: 048
     Dates: start: 20100728
  9. IBUPROFEN [Concomitant]
     Dosage: 600 MG TAKE ONE TABLET EVERY SIX HOURS AS NEEDED
     Route: 048
     Dates: start: 20100722
  10. DOCQLACE [Concomitant]
     Route: 048
     Dates: start: 20100722
  11. PREVACID [Concomitant]
  12. FUROSEMIDE [Concomitant]
     Dates: start: 20120805
  13. METFORMIN [Concomitant]
     Dates: start: 20120420
  14. SIMVASTATIN [Concomitant]
     Dates: start: 20130126
  15. LYRICA [Concomitant]
     Dates: start: 20120702
  16. SULFAMETHOXAZOLE [Concomitant]
  17. SOLOSTAR [Concomitant]
  18. INSULIN GLARGINE [Concomitant]
  19. NOVOLOG [Concomitant]
     Indication: DIABETES MELLITUS
     Dosage: 10 ML
  20. MINOCYCLINE [Concomitant]
     Dates: start: 20121215
  21. DIOVAN HCT [Concomitant]
     Dosage: 320/ 12.5 MG
     Dates: start: 20120420
  22. DIOVAN HCT [Concomitant]
     Dosage: 320/ 12.5 MG
     Dates: start: 20130517
  23. SENNA-S [Concomitant]
     Dosage: 8.6 MG/ 50 MG
     Dates: start: 20120419
  24. GABAPENTIN [Concomitant]
     Dates: start: 20131023

REACTIONS (13)
  - Depression [Unknown]
  - Osteoporosis [Unknown]
  - Multiple fractures [Unknown]
  - Tibia fracture [Unknown]
  - Fibula fracture [Unknown]
  - Peripheral arterial occlusive disease [Unknown]
  - Exostosis [Unknown]
  - Fall [Unknown]
  - Staphylococcal osteomyelitis [Unknown]
  - Ankle fracture [Unknown]
  - Lower limb fracture [Unknown]
  - Diabetes mellitus [Unknown]
  - Type 1 diabetes mellitus [Unknown]
